FAERS Safety Report 6019026-X (Version None)
Quarter: 2008Q4

REPORT INFORMATION
  Report Type: 
  Country: None (occurrence: None)
  Receive Date: 20081221
  Receipt Date: 20081221
  Transmission Date: 20090506
  Serious: No
  Sender: FDA-Public Use
  Company Number: None

PATIENT
  Age: 48 Year
  Sex: Female

DRUGS (2)
  1. ZITHROMAX [Suspect]
  2. GENERIC ZPAK [Concomitant]

REACTIONS (1)
  - TACHYCARDIA [None]
